FAERS Safety Report 8881272 (Version 1)
Quarter: 2012Q4

REPORT INFORMATION
  Report Type: 
  Country: DE (occurrence: DE)
  Receive Date: 20121031
  Receipt Date: 20121031
  Transmission Date: 20130627
  Serious: Yes (Other)
  Sender: FDA-Public Use
  Company Number: DE-MYLANLABS-2012S1021778

PATIENT
  Sex: Male
  Weight: 85 kg

DRUGS (5)
  1. PRAVASTATIN [Suspect]
     Indication: TYPE IIB HYPERLIPIDAEMIA
     Dosage: wenige Tage
     Route: 048
     Dates: start: 200506
  2. TREDAPTIVE [Suspect]
     Indication: TYPE IIB HYPERLIPIDAEMIA
     Route: 048
     Dates: start: 201007, end: 201010
  3. SIMVASTATIN [Suspect]
     Indication: TYPE IIB HYPERLIPIDAEMIA
     Dosage: 10-20mg tagl.
     Route: 048
     Dates: start: 201106, end: 201210
  4. FLUVASTATIN [Suspect]
     Indication: TYPE IIB HYPERLIPIDAEMIA
     Route: 048
     Dates: start: 200508
  5. EZETROL [Suspect]
     Indication: TYPE IIB HYPERLIPIDAEMIA
     Route: 048
     Dates: start: 200608

REACTIONS (7)
  - Myalgia [Recovered/Resolved]
  - Abdominal discomfort [Recovered/Resolved]
  - Pruritus [Recovered/Resolved]
  - Rash [Recovered/Resolved]
  - Diarrhoea [Recovered/Resolved]
  - Faecal incontinence [Recovered/Resolved]
  - Nausea [Recovered/Resolved]
